FAERS Safety Report 5356376-4 (Version None)
Quarter: 2007Q2

REPORT INFORMATION
  Report Type: 
  Country: None (occurrence: None)
  Receive Date: 20070530
  Receipt Date: 20061106
  Transmission Date: 20071010
  Serious: Yes (Other)
  Sender: FDA-Public Use
  Company Number: US200609005159

PATIENT
  Age: 48 Year
  Sex: Male
  Weight: 68.9 kg

DRUGS (1)
  1. ZYPREXA [Suspect]
     Dosage: 40 MG, ORAL
     Route: 048
     Dates: start: 19950801, end: 20020601

REACTIONS (7)
  - BLOOD TRIGLYCERIDES INCREASED [None]
  - CEREBROVASCULAR DISORDER [None]
  - DIABETES MELLITUS [None]
  - HYPERTENSION [None]
  - METABOLIC DISORDER [None]
  - PANCREATITIS [None]
  - PRESCRIBED OVERDOSE [None]
